FAERS Safety Report 23261791 (Version 1)
Quarter: 2023Q4

REPORT INFORMATION
  Report Type: Spontaneous
  Country: DE (occurrence: DE)
  Receive Date: 20231205
  Receipt Date: 20231205
  Transmission Date: 20240110
  Serious: Yes (Hospitalization)
  Sender: FDA-Public Use
  Company Number: DE-DCGMA-22200168

PATIENT
  Age: 72 Year
  Sex: Male
  Weight: 120 kg

DRUGS (13)
  1. ALBUMIN HUMAN [Suspect]
     Active Substance: ALBUMIN HUMAN
     Indication: Product used for unknown indication
     Dosage: UNK
  2. CHOLECALCIFEROL [Concomitant]
     Active Substance: CHOLECALCIFEROL
  3. PANCRELIPASE [Concomitant]
     Active Substance: PANCRELIPASE
  4. LEVOTHYROXINE [Concomitant]
     Active Substance: LEVOTHYROXINE
  5. EZETIMIBE [Concomitant]
     Active Substance: EZETIMIBE
  6. HEPARIN [Concomitant]
     Active Substance: HEPARIN SODIUM
  7. BISOPROLOL [Concomitant]
     Active Substance: BISOPROLOL\BISOPROLOL FUMARATE
  8. ESOMEPRAZOLE MAGNESIUM [Concomitant]
     Active Substance: ESOMEPRAZOLE\ESOMEPRAZOLE MAGNESIUM\ESOMEPRAZOLE MAGNESIUM DIHYDRATE
  9. POTASSIUM IODIDE [Concomitant]
     Active Substance: POTASSIUM IODIDE
  10. TAMSULOSIN [Concomitant]
     Active Substance: TAMSULOSIN
  11. LISINOPRIL [Concomitant]
     Active Substance: LISINOPRIL
  12. ATORVASTATIN [Concomitant]
     Active Substance: ATORVASTATIN
  13. ASPIRIN [Concomitant]
     Active Substance: ASPIRIN

REACTIONS (2)
  - Anaphylactic shock [Unknown]
  - Resuscitation [Unknown]

NARRATIVE: CASE EVENT DATE: 20221227
